FAERS Safety Report 8337985 (Version 4)
Quarter: 2013Q1

REPORT INFORMATION
  Report Type: Report from Study
  Country: JP (occurrence: JP)
  Receive Date: 20120116
  Receipt Date: 20130320
  Transmission Date: 20140127
  Serious: Yes (Hospitalization, Disabling)
  Sender: FDA-Public Use
  Company Number: JP-GLAXOSMITHKLINE-B0774418A

PATIENT
  Age: 66 Year
  Sex: Female
  Weight: 56 kg

DRUGS (5)
  1. TYKERB [Suspect]
     Indication: BREAST CANCER
     Route: 048
     Dates: start: 20110406, end: 20111026
  2. XELODA [Suspect]
     Route: 048
     Dates: start: 20110406, end: 20110519
  3. XELODA [Suspect]
     Route: 048
     Dates: start: 20110520, end: 20110804
  4. XELODA [Suspect]
     Route: 048
     Dates: start: 20110805, end: 20111026
  5. LOPEMIN [Concomitant]
     Indication: PROPHYLAXIS AGAINST DIARRHOEA
     Route: 048
     Dates: start: 20110406

REACTIONS (3)
  - Rash [Recovered/Resolved]
  - Paronychia [Recovered/Resolved]
  - Ulcerative keratitis [Recovered/Resolved]
